FAERS Safety Report 5777034-8 (Version None)
Quarter: 2008Q2

REPORT INFORMATION
  Report Type: 
  Country: None (occurrence: None)
  Receive Date: 20080617
  Receipt Date: 20080617
  Transmission Date: 20081010
  Serious: No
  Sender: FDA-Public Use
  Company Number: None

PATIENT
  Age: 59 Year
  Sex: Male
  Weight: 55 kg

DRUGS (4)
  1. LORAZEPAM [Suspect]
     Dosage: 180MG IV W/I 4HRS
     Route: 042
     Dates: start: 20080317
  2. THIAMINE [Concomitant]
  3. FOLIC ACID [Concomitant]
  4. M.V.I. [Concomitant]

REACTIONS (5)
  - DELIRIUM TREMENS [None]
  - DISORIENTATION [None]
  - INCORRECT DOSE ADMINISTERED [None]
  - LOSS OF CONSCIOUSNESS [None]
  - MENTAL STATUS CHANGES [None]
